FAERS Safety Report 5494625-2 (Version None)
Quarter: 2007Q4

REPORT INFORMATION
  Report Type: 
  Country: None (occurrence: None)
  Receive Date: 20071024
  Receipt Date: 20071019
  Transmission Date: 20080405
  Serious: Yes (Death)
  Sender: FDA-Public Use
  Company Number: US-ASTRAZENECA-2007UW16501

PATIENT
  Age: 44 Year
  Sex: Male
  Weight: 115.5 kg

DRUGS (8)
  1. SEROQUEL [Suspect]
     Indication: SCHIZOPHRENIA
     Route: 048
     Dates: end: 20070630
  2. SEROQUEL [Suspect]
     Indication: BIPOLAR DISORDER
     Route: 048
     Dates: end: 20070630
  3. RISPERDAL [Concomitant]
     Indication: SCHIZOPHRENIA
     Dates: end: 20070630
  4. ZYPREXA [Concomitant]
     Indication: SCHIZOPHRENIA
     Dates: end: 20070630
  5. ABILIFY [Concomitant]
  6. HALDOL [Concomitant]
  7. THORAZINE [Concomitant]
  8. TRILEPTAL [Concomitant]

REACTIONS (2)
  - DEATH [None]
  - DIABETES MELLITUS [None]
